FAERS Safety Report 8064271-5 (Version None)
Quarter: 2012Q1

REPORT INFORMATION
  Report Type: 
  Country: None (occurrence: None)
  Receive Date: 20120123
  Receipt Date: 20120113
  Transmission Date: 20120608
  Serious: Yes (Other)
  Sender: FDA-Public Use
  Company Number: US-BAYER-2011-080625

PATIENT
  Age: 47 Year
  Sex: Female
  Weight: 90.703 kg

DRUGS (1)
  1. YAZ [Suspect]
     Dosage: UNK
     Dates: start: 20070101, end: 20100101

REACTIONS (4)
  - DEPRESSION [None]
  - CHOLECYSTECTOMY [None]
  - MENTAL DISORDER [None]
  - INJURY [None]
